FAERS Safety Report 4735884-0 (Version None)
Quarter: 2005Q3

REPORT INFORMATION
  Report Type: 
  Country: None (occurrence: None)
  Receive Date: 20050804
  Receipt Date: 20050804
  Transmission Date: 20060218
  Serious: Yes (Hospitalization)
  Sender: FDA-Public Use
  Company Number: None

PATIENT
  Sex: Female
  Weight: 0.07 kg

DRUGS (1)
  1. BUSULFAN TEST DOSE [Suspect]
     Indication: ACUTE LEUKAEMIA
     Dosage: 35 MG ONCE INTRAVENOUS
     Route: 042
     Dates: start: 20050718, end: 20050718

REACTIONS (3)
  - GRAFT VERSUS HOST DISEASE [None]
  - HYPERBILIRUBINAEMIA [None]
  - RASH [None]
